FAERS Safety Report 5778145-3 (Version None)
Quarter: 2008Q2

REPORT INFORMATION
  Report Type: 
  Country: None (occurrence: None)
  Receive Date: 20080601
  Receipt Date: 20080110
  Transmission Date: 20081010
  Serious: No
  Sender: FDA-Public Use
  Company Number: US200801002281

PATIENT
  Age: 54 Year
  Sex: Female
  Weight: 90.2 kg

DRUGS (2)
  1. BYETTA [Suspect]
     Indication: TYPE 2 DIABETES MELLITUS
     Dosage: 5 UG, 2/D, SUBCUTANEOUS
     Route: 058
     Dates: start: 20071229
  2. METFORMIN HCL [Concomitant]

REACTIONS (6)
  - DECREASED APPETITE [None]
  - PARANASAL SINUS HYPERSECRETION [None]
  - PHARYNGOLARYNGEAL PAIN [None]
  - PULMONARY CONGESTION [None]
  - UPPER RESPIRATORY TRACT INFECTION [None]
  - WEIGHT DECREASED [None]
